FAERS Safety Report 9739293 (Version 1)
Quarter: 2013Q4

REPORT INFORMATION
  Report Type: Spontaneous
  Country: FR (occurrence: FR)
  Receive Date: 20131209
  Receipt Date: 20131209
  Transmission Date: 20140711
  Serious: Yes (Disabling)
  Sender: FDA-Public Use
  Company Number: FR-ELI_LILLY_AND_COMPANY-FR201311009331

PATIENT
  Sex: Female
  Weight: 114 kg

DRUGS (3)
  1. PROZAC [Suspect]
     Indication: PRODUCT USED FOR UNKNOWN INDICATION
     Dosage: 40 MG, EACH MORNING
     Route: 048
     Dates: start: 201310
  2. TEMESTA [Concomitant]
     Dosage: 1 MG, TID
  3. ATARAX [Concomitant]
     Dosage: 50 MG, EACH EVENING

REACTIONS (3)
  - Photopsia [Unknown]
  - Weight increased [Unknown]
  - Increased appetite [Unknown]
